FAERS Safety Report 8062420-6 (Version None)
Quarter: 2012Q1

REPORT INFORMATION
  Report Type: 
  Country: None (occurrence: None)
  Receive Date: 20120123
  Receipt Date: 20120111
  Transmission Date: 20120608
  Serious: Yes (Death, Hospitalization)
  Sender: FDA-Public Use
  Company Number: US-ACTELION-A-US2011-57869

PATIENT

DRUGS (2)
  1. LASIX [Concomitant]
  2. TRACLEER [Suspect]
     Indication: PULMONARY ARTERIAL HYPERTENSION
     Dosage: UNK
     Route: 048
     Dates: start: 20111104

REACTIONS (11)
  - PULMONARY ARTERIAL HYPERTENSION [None]
  - THERAPEUTIC RESPONSE UNEXPECTED [None]
  - DIZZINESS [None]
  - FLUID RETENTION [None]
  - DRY MOUTH [None]
  - URINE OUTPUT DECREASED [None]
  - HEARING IMPAIRED [None]
  - FATIGUE [None]
  - ASTHENIA [None]
  - OEDEMA PERIPHERAL [None]
  - WEIGHT INCREASED [None]
